FAERS Safety Report 7892341-0 (Version None)
Quarter: 2011Q4

REPORT INFORMATION
  Report Type: 
  Country: None (occurrence: None)
  Receive Date: 20111103
  Receipt Date: 20111103
  Transmission Date: 20120403
  Serious: Yes (Hospitalization)
  Sender: FDA-Public Use
  Company Number: None

PATIENT
  Age: 23 Year
  Sex: Female
  Weight: 118 kg

DRUGS (1)
  1. ETHINYL ESTRADIOL AND NORETHINDRONE [Suspect]
     Indication: ORAL CONTRACEPTION
     Dosage: 35MCG DAILY ORAL PREVIOUS 5 YEARS
     Route: 048

REACTIONS (1)
  - DEEP VEIN THROMBOSIS [None]
